FAERS Safety Report 8289932-4 (Version None)
Quarter: 2012Q2

REPORT INFORMATION
  Report Type: 
  Country: None (occurrence: None)
  Receive Date: 20120417
  Receipt Date: 20120409
  Transmission Date: 20120825
  Serious: Yes (Other)
  Sender: FDA-Public Use
  Company Number: US-US-EMD SERONO, INC.-7125001

PATIENT
  Sex: Male

DRUGS (2)
  1. UNSPECIFIED PILL FOR EPILEPSY [Concomitant]
     Indication: EPILEPSY
  2. REBIF [Suspect]
     Indication: MULTIPLE SCLEROSIS
     Route: 058
     Dates: start: 20111118

REACTIONS (3)
  - HERNIA REPAIR [None]
  - MIGRAINE [None]
  - ANGER [None]
